FAERS Safety Report 13702228 (Version 3)
Quarter: 2017Q3

REPORT INFORMATION
  Report Type: Spontaneous
  Country: JP (occurrence: JP)
  Receive Date: 20170629
  Receipt Date: 20170919
  Transmission Date: 20171127
  Serious: Yes (Other)
  Sender: FDA-Public Use
  Company Number: JP-GLAXOSMITHKLINE-JP2017JPN098299

PATIENT
  Age: 70 Year
  Sex: Male

DRUGS (6)
  1. MENESIT [Concomitant]
     Active Substance: CARBIDOPA\LEVODOPA
     Dosage: 100 MG, QD
  2. ARICEPT [Concomitant]
     Active Substance: DONEPEZIL HYDROCHLORIDE
     Dosage: 5 MG, QD
  3. REQUIP [Suspect]
     Active Substance: ROPINIROLE HYDROCHLORIDE
     Indication: PARKINSON^S DISEASE
     Dosage: 2 MG, 1D
     Route: 048
     Dates: start: 20140404, end: 20140408
  4. LAXOBERON [Concomitant]
     Active Substance: SODIUM PICOSULFATE
     Indication: CONSTIPATION
     Dosage: UNK, PRN
  5. MENESIT [Concomitant]
     Active Substance: CARBIDOPA\LEVODOPA
     Dosage: 100 MG, BID
     Dates: start: 20140526
  6. MAGMITT [Concomitant]
     Active Substance: MAGNESIUM OXIDE
     Dosage: 330 MG, QD

REACTIONS (6)
  - Urinary incontinence [Unknown]
  - Pallor [Unknown]
  - Gait inability [Unknown]
  - Bedridden [Unknown]
  - Fall [Unknown]
  - Hypotension [Unknown]

NARRATIVE: CASE EVENT DATE: 20140405
